FAERS Safety Report 22522835 (Version 1)
Quarter: 2023Q2

REPORT INFORMATION
  Report Type: Spontaneous
  Country: US (occurrence: US)
  Receive Date: 20230605
  Receipt Date: 20230605
  Transmission Date: 20230722
  Serious: Yes (Other)
  Sender: FDA-Public Use
  Company Number: US-BAUSCHBL-2023BNL004756

PATIENT
  Age: 78 Year
  Sex: Female

DRUGS (1)
  1. SOOTHE XP [Suspect]
     Active Substance: LIGHT MINERAL OIL\MINERAL OIL
     Indication: Dry eye
     Dosage: STARTED USING THIS PRODUCT ABOUT TWO YEARS AGO
     Route: 065
     Dates: start: 2021

REACTIONS (2)
  - Cataract [Unknown]
  - Expired product administered [Unknown]
